FAERS Safety Report 7775671-2 (Version None)
Quarter: 2011Q3

REPORT INFORMATION
  Report Type: 
  Country: None (occurrence: None)
  Receive Date: 20110923
  Receipt Date: 20110913
  Transmission Date: 20111222
  Serious: Yes (Other)
  Sender: FDA-Public Use
  Company Number: US-GLAXOSMITHKLINE-A0942521A

PATIENT
  Age: 76 Year
  Sex: Male
  Weight: 104.5 kg

DRUGS (2)
  1. ADVAIR DISKUS 100/50 [Concomitant]
     Indication: ASTHMA LATE ONSET
     Route: 055
  2. FLOVENT [Suspect]
     Indication: ASTHMA
     Route: 055

REACTIONS (4)
  - SENSORY DISTURBANCE [None]
  - BONE DECALCIFICATION [None]
  - OSTEOLYSIS [None]
  - PAIN [None]
